FAERS Safety Report 18729554 (Version 1)
Quarter: 2021Q1

REPORT INFORMATION
  Report Type: Spontaneous
  Country: FR (occurrence: FR)
  Receive Date: 20210112
  Receipt Date: 20210112
  Transmission Date: 20210419
  Serious: Yes (Other)
  Sender: FDA-Public Use
  Company Number: FR-TEVA-2021-FR-1867067

PATIENT
  Age: 44 Year
  Sex: Male
  Weight: 58 kg

DRUGS (13)
  1. ALDACTONE [Concomitant]
     Active Substance: SPIRONOLACTONE
     Dosage: UNIT DOSE : 50 MG
     Dates: start: 20201125
  2. LEVOFLOXACINE [Suspect]
     Active Substance: LEVOFLOXACIN
     Dosage: UNIT DOSE : 500 MG
     Route: 042
     Dates: start: 20200828, end: 20201127
  3. AMIKLIN [Concomitant]
     Active Substance: AMIKACIN SULFATE
     Dosage: UNIT DOSE : 15 MG/KG
     Route: 042
     Dates: start: 20200828, end: 20201117
  4. DOLIPRANE [Concomitant]
     Active Substance: ACETAMINOPHEN
     Dosage: UNIT DOSE : 500 MG
     Dates: start: 20201125
  5. SKENAN [Concomitant]
     Active Substance: MORPHINE SULFATE
     Dosage: PROLONGED?RELEASE MICROGRANULES IN HARD CAPSULES, UNIT DOSE : 20 MG
     Dates: start: 20201125
  6. LINEZOLIDE [Suspect]
     Active Substance: LINEZOLID
     Indication: TUBERCULOSIS
     Dosage: UNIT DOSE : 600 MG
     Route: 048
     Dates: start: 20201117, end: 20201127
  7. FUNGIZONE [Concomitant]
     Active Substance: AMPHOTERICIN B
     Route: 048
     Dates: start: 20201125
  8. ACTISKENAN [Concomitant]
     Active Substance: MORPHINE SULFATE
     Dosage: UNIT DOSE : 20 MG
     Dates: start: 20201125
  9. RIFAMPICINE [Concomitant]
     Active Substance: RIFAMPIN
     Indication: TUBERCULOSIS
     Route: 042
     Dates: start: 20200820, end: 20200909
  10. PANTOPRAZOLE [Concomitant]
     Active Substance: PANTOPRAZOLE
     Dosage: UNIT DOSE  : 40 MG
     Dates: start: 20201125, end: 20201126
  11. ISONIAZIDE [Concomitant]
     Active Substance: ISONIAZID
     Dosage: UNIT DOSE : 200 MG
     Route: 042
     Dates: start: 20200820, end: 20201127
  12. BECILAN [Concomitant]
     Active Substance: PYRIDOXINE
     Dosage: UNIT DOSE : 250 MG
     Route: 048
  13. ETHAMBUTOL [Concomitant]
     Active Substance: ETHAMBUTOL HYDROCHLORIDE
     Dosage: UNIT DOSE : 1000 MG
     Route: 042
     Dates: start: 20200820, end: 20201127

REACTIONS (2)
  - Overdose [Recovered/Resolved]
  - Confusional state [Recovering/Resolving]

NARRATIVE: CASE EVENT DATE: 20201117
